FAERS Safety Report 8153789-2 (Version None)
Quarter: 2012Q1

REPORT INFORMATION
  Report Type: 
  Country: None (occurrence: None)
  Receive Date: 20120221
  Receipt Date: 20120215
  Transmission Date: 20120608
  Serious: Yes (Hospitalization)
  Sender: FDA-Public Use
  Company Number: JP-GLAXOSMITHKLINE-B0779138A

PATIENT
  Age: 62 Year
  Sex: Male

DRUGS (5)
  1. PAXIL [Concomitant]
     Route: 048
  2. LITHIUM CARBONATE [Concomitant]
     Route: 048
  3. LULLAN [Concomitant]
     Route: 048
  4. LENDORMIN [Concomitant]
     Route: 048
  5. LAMICTAL [Suspect]
     Indication: BIPOLAR DISORDER
     Dosage: 50MG PER DAY
     Route: 048
     Dates: start: 20111227, end: 20120122

REACTIONS (4)
  - STOMATITIS [None]
  - STEVENS-JOHNSON SYNDROME [None]
  - RASH [None]
  - LIP EROSION [None]
